FAERS Safety Report 6652983-7 (Version None)
Quarter: 2010Q1

REPORT INFORMATION
  Report Type: 
  Country: None (occurrence: None)
  Receive Date: 20100326
  Receipt Date: 20100315
  Transmission Date: 20100710
  Serious: Yes (Other)
  Sender: FDA-Public Use
  Company Number: PHEH2009US00730

PATIENT
  Sex: Female

DRUGS (41)
  1. AREDIA [Suspect]
     Indication: NEOPLASM MALIGNANT
     Dosage: 90 MG, QMO
     Route: 042
     Dates: start: 19990101, end: 20070101
  2. CHEMOTHERAPEUTICS NOS [Concomitant]
  3. RADIATION THERAPY [Concomitant]
  4. LOTREL [Concomitant]
     Dosage: UNK
  5. ZOLOFT [Concomitant]
     Dosage: 100 MG, QD
  6. DITROPAN XL [Concomitant]
     Dosage: UNK
  7. PREVACID [Concomitant]
  8. IRON [Concomitant]
  9. ALLOPURINOL [Concomitant]
  10. RENAGEL [Concomitant]
  11. AMIODARONE [Concomitant]
  12. SIMVASTATIN [Concomitant]
  13. SENSIPAR [Concomitant]
  14. COUMADIN [Concomitant]
  15. LEXAPRO [Concomitant]
  16. ACETAMINOPHEN [Concomitant]
  17. LOPERAMIDE [Concomitant]
  18. ZOFRAN [Concomitant]
  19. EPOGEN [Concomitant]
  20. AUGMENTIN                               /SCH/ [Concomitant]
  21. AMOXICILLIN [Concomitant]
  22. VITAMIN E [Concomitant]
  23. PENTOXIFYLLINE [Concomitant]
  24. THALIDOMIDE [Concomitant]
  25. CLONIDINE [Concomitant]
     Dosage: UNK
  26. NORVASC [Concomitant]
  27. PREMARIN [Concomitant]
     Dosage: UNK
  28. AMBIEN [Concomitant]
     Dosage: UNK
  29. LIDOCAINE [Concomitant]
     Dosage: UNK
  30. FLORINEF [Concomitant]
     Dosage: UNK
  31. TYLENOL-500 [Concomitant]
     Dosage: UNK
  32. TRENTAL ^ALBERT-ROUSSEL^ [Concomitant]
     Dosage: UNK
  33. DECADRON [Concomitant]
  34. MACROBID [Concomitant]
  35. MIDODRINE HYDROCHLORIDE [Concomitant]
  36. ZOCOR [Concomitant]
  37. ONDANSETRON [Concomitant]
  38. TYLENOL (CAPLET) [Concomitant]
  39. TYLENOL PM, EXTRA STRENGTH [Concomitant]
  40. FLUDROCORTISONE ACETATE [Concomitant]
  41. REVLIMID [Concomitant]

REACTIONS (56)
  - ABSCESS DRAINAGE [None]
  - ADRENAL NEOPLASM [None]
  - ANAEMIA [None]
  - ANKLE FRACTURE [None]
  - ANXIETY [None]
  - ARTERIOVENOUS FISTULA OPERATION [None]
  - ARTHRALGIA [None]
  - ASTHENIA [None]
  - ATRIAL FIBRILLATION [None]
  - BONE DISORDER [None]
  - DEAFNESS [None]
  - DEFORMITY [None]
  - DEPRESSION [None]
  - DIALYSIS [None]
  - DISABILITY [None]
  - DYSPEPSIA [None]
  - DYSPHAGIA [None]
  - DYSPNOEA [None]
  - DYSPNOEA EXERTIONAL [None]
  - EAR PAIN [None]
  - ENDODONTIC PROCEDURE [None]
  - FALL [None]
  - GAIT DISTURBANCE [None]
  - GASTROOESOPHAGEAL REFLUX DISEASE [None]
  - GINGIVAL DISORDER [None]
  - HYPOAESTHESIA [None]
  - INFECTION [None]
  - INJURY [None]
  - IRRITABLE BOWEL SYNDROME [None]
  - JAW FRACTURE [None]
  - MOBILITY DECREASED [None]
  - MULTIPLE MYELOMA [None]
  - MUSCULAR WEAKNESS [None]
  - NAUSEA [None]
  - NECK PAIN [None]
  - NEUROPATHY PERIPHERAL [None]
  - NIGHT SWEATS [None]
  - ODYNOPHAGIA [None]
  - OEDEMA PERIPHERAL [None]
  - OSTEOARTHRITIS [None]
  - OSTEONECROSIS [None]
  - PAIN [None]
  - PAIN IN EXTREMITY [None]
  - PARAESTHESIA [None]
  - PULMONARY FUNCTION TEST DECREASED [None]
  - RENAL FAILURE CHRONIC [None]
  - SLEEP APNOEA SYNDROME [None]
  - SMALL INTESTINAL OBSTRUCTION [None]
  - SMALL INTESTINE OPERATION [None]
  - SPINAL LAMINECTOMY [None]
  - SPINAL OPERATION [None]
  - TOOTH ABSCESS [None]
  - TOOTH EXTRACTION [None]
  - URINARY TRACT INFECTION [None]
  - VERTIGO [None]
  - WEIGHT DECREASED [None]
